FAERS Safety Report 8317801 (Version 2)
Quarter: 2012Q4

REPORT INFORMATION
  Report Type: 
  Country: FR (occurrence: FR)
  Receive Date: 20120102
  Receipt Date: 20121224
  Transmission Date: 20130627
  Serious: Yes (Life-Threatening)
  Sender: FDA-Public Use
  Company Number: FR-ROCHE-1024710

PATIENT
  Age: 28 Year
  Sex: Female

DRUGS (23)
  1. RIVOTRIL [Suspect]
     Indication: PRODUCT USED FOR UNKNOWN INDICATION
     Route: 048
     Dates: start: 20090930, end: 20090930
  2. TEGRETOL [Suspect]
     Indication: PRODUCT USED FOR UNKNOWN INDICATION
     Route: 048
     Dates: start: 20090930, end: 20090930
  3. DI-ANTALVIC [Suspect]
     Indication: PRODUCT USED FOR UNKNOWN INDICATION
     Route: 048
     Dates: start: 20090930, end: 20090930
  4. FLUIMUCIL (BRAZIL) [Concomitant]
  5. EUPRESSYL [Concomitant]
  6. LOXEN [Concomitant]
  7. TENORMINE [Concomitant]
  8. CLAFORAN [Concomitant]
  9. CLAMOXYL (AMOXICILLIN TRIHYDRATE) [Concomitant]
  10. PROGRAF [Concomitant]
  11. CELLCEPT [Concomitant]
  12. CORTANCYL [Concomitant]
  13. ZYVOXID [Concomitant]
  14. TIENAM [Concomitant]
  15. ZOPHREN [Concomitant]
  16. BACTRIM [Concomitant]
  17. SODIUM HEPARIN [Concomitant]
  18. BURINEX [Concomitant]
  19. CIFLOX [Concomitant]
  20. TIENAM [Concomitant]
  21. ABELCET [Concomitant]
  22. ACUPAN [Concomitant]
  23. MORPHINE [Concomitant]

REACTIONS (2)
  - Hepatitis fulminant [Recovered/Resolved with Sequelae]
  - Liver transplant [Recovered/Resolved with Sequelae]
